FAERS Safety Report 4477087-3 (Version None)
Quarter: 2004Q4

REPORT INFORMATION
  Report Type: 
  Country: None (occurrence: None)
  Receive Date: 20041013
  Receipt Date: 20040929
  Transmission Date: 20050328
  Serious: Yes (Death, Hospitalization)
  Sender: FDA-Public Use
  Company Number: WAES 0403USA00160

PATIENT
  Age: 70 Year
  Sex: Male

DRUGS (2)
  1. COZAAR [Suspect]
     Indication: HYPERTENSION
     Dosage: 25 MG/DAILY
     Route: 048
     Dates: start: 20010219, end: 20030507
  2. THYRADIN-S [Concomitant]

REACTIONS (1)
  - LYMPHOMA [None]
